FAERS Safety Report 15940887 (Version 1)
Quarter: 2019Q1

REPORT INFORMATION
  Report Type: Spontaneous
  Country: US (occurrence: US)
  Receive Date: 20190208
  Receipt Date: 20190208
  Transmission Date: 20190417
  Serious: Yes (Hospitalization)
  Sender: FDA-Public Use
  Company Number: US-LANNETT COMPANY, INC.-US-2019LAN000128

PATIENT
  Age: 52 Year
  Sex: Male

DRUGS (12)
  1. FLUOXETINE HYDROCHLORIDE. [Suspect]
     Active Substance: FLUOXETINE HYDROCHLORIDE
     Indication: APATHY
     Dosage: 40 MG, QD (ON HOSPITAL DAY 1)
     Route: 065
  2. FLUOXETINE HYDROCHLORIDE. [Suspect]
     Active Substance: FLUOXETINE HYDROCHLORIDE
     Indication: DEPRESSIVE SYMPTOM
     Dosage: 20 MG, QD (ON HOSPITAL DAY 3)
     Route: 065
  3. LISDEXAMFETAMINE [Suspect]
     Active Substance: LISDEXAMFETAMINE
     Indication: DEPRESSIVE SYMPTOM
  4. FLUCONAZOLE. [Concomitant]
     Active Substance: FLUCONAZOLE
     Indication: ONYCHOMYCOSIS
     Dosage: 200 MG, WEEKLY (AT ADMISSION)
     Route: 065
  5. FLUOXETINE HYDROCHLORIDE. [Suspect]
     Active Substance: FLUOXETINE HYDROCHLORIDE
     Indication: ONYCHOMYCOSIS
     Dosage: 60 MG, QD (AT ADMISSION)
     Route: 065
  6. LISDEXAMFETAMINE [Suspect]
     Active Substance: LISDEXAMFETAMINE
     Indication: APATHY
  7. LISDEXAMFETAMINE [Suspect]
     Active Substance: LISDEXAMFETAMINE
     Indication: ONYCHOMYCOSIS
     Dosage: 40 MG, QD (AT ADMISSION)
     Route: 065
  8. CLONAZEPAM. [Concomitant]
     Active Substance: CLONAZEPAM
     Dosage: 0.25 MG, AT BEDTIME (ON HOSPITAL DAY 8)
     Route: 065
  9. CLONAZEPAM. [Concomitant]
     Active Substance: CLONAZEPAM
     Indication: ONYCHOMYCOSIS
     Dosage: 0.5 MG, BID (AT ADMISSION)
     Route: 065
  10. MELATONIN [Suspect]
     Active Substance: MELATONIN
     Indication: INSOMNIA
     Dosage: 5 MG, UNK (ON HOSPITAL DAY 21)
     Route: 048
  11. CLONAZEPAM. [Concomitant]
     Active Substance: CLONAZEPAM
     Dosage: 0.5 MG, AT BEDTIME (ON HOSPITAL DAY 4)
     Route: 065
  12. OLANZAPINE. [Concomitant]
     Active Substance: OLANZAPINE
     Indication: ONYCHOMYCOSIS
     Dosage: 7.5 MG, NIGHTLY
     Route: 065

REACTIONS (1)
  - Choreoathetosis [Recovered/Resolved]
